FAERS Safety Report 14504057 (Version 1)
Quarter: 2018Q1

REPORT INFORMATION
  Report Type: Spontaneous
  Country: US (occurrence: US)
  Receive Date: 20180208
  Receipt Date: 20180208
  Transmission Date: 20180509
  Serious: No
  Sender: FDA-Public Use
  Company Number: US-JNJFOC-20180111097

PATIENT
  Age: 5 Decade
  Sex: Female

DRUGS (2)
  1. PEPCID COMPLETE [Suspect]
     Active Substance: CALCIUM CARBONATE\FAMOTIDINE\MAGNESIUM HYDROXIDE
     Indication: NEOPLASM PROPHYLAXIS
     Dosage: TOOK TWO TABLETS A DAY.
     Route: 048
  2. PEPCID COMPLETE [Suspect]
     Active Substance: CALCIUM CARBONATE\FAMOTIDINE\MAGNESIUM HYDROXIDE
     Indication: GASTROOESOPHAGEAL REFLUX DISEASE
     Dosage: TOOK TWO TABLETS A DAY.
     Route: 048

REACTIONS (3)
  - Off label use [Unknown]
  - Product use in unapproved indication [Unknown]
  - Product physical issue [Unknown]
